FAERS Safety Report 25626265 (Version 1)
Quarter: 2025Q3

REPORT INFORMATION
  Report Type: Spontaneous
  Country: US (occurrence: US)
  Receive Date: 20250731
  Receipt Date: 20250731
  Transmission Date: 20251020
  Serious: No
  Sender: SUNOVION
  Company Number: US-SMPA-2025SPA009352AA

PATIENT

DRUGS (10)
  1. ORGOVYX [Suspect]
     Active Substance: RELUGOLIX
     Indication: Prostate cancer
     Route: 048
     Dates: start: 20250630
  2. ORGOVYX [Suspect]
     Active Substance: RELUGOLIX
     Route: 048
     Dates: start: 20250701
  3. ASPIRIN [Concomitant]
     Active Substance: ASPIRIN
     Route: 065
  4. BENAZEPRIL [Concomitant]
     Active Substance: BENAZEPRIL HYDROCHLORIDE
     Route: 065
  5. OMEPRAZOLE [Concomitant]
     Active Substance: OMEPRAZOLE
     Route: 065
  6. EZETIMIBE [Concomitant]
     Active Substance: EZETIMIBE
     Route: 065
  7. LEFLUNOMIDE [Concomitant]
     Active Substance: LEFLUNOMIDE
     Route: 065
  8. METOPROLOL [Concomitant]
     Active Substance: METOPROLOL
     Route: 065
  9. NORVASC [Concomitant]
     Active Substance: AMLODIPINE BESYLATE
     Route: 065
  10. WELCHOL [Concomitant]
     Active Substance: COLESEVELAM HYDROCHLORIDE
     Route: 065

REACTIONS (1)
  - Fatigue [Unknown]
